FAERS Safety Report 18285941 (Version 3)
Quarter: 2022Q2

REPORT INFORMATION
  Report Type: Report from Study
  Country: TR (occurrence: TR)
  Receive Date: 20200919
  Receipt Date: 20220407
  Transmission Date: 20220721
  Serious: Yes (Death, Other)
  Sender: FDA-Public Use
  Company Number: TR-ABBVIE-20K-161-3570979-00

PATIENT
  Age: 67 Year
  Sex: Male

DRUGS (3)
  1. CARBIDOPA\LEVODOPA [Suspect]
     Active Substance: CARBIDOPA\LEVODOPA
     Indication: Parkinson^s disease
     Dosage: MORNING DOSE (ML): 3.00, CONTINUOUS DOSE (ML): 1.60 , EXTRA DOSE (ML): 0.50
     Route: 050
     Dates: start: 20190418
  2. CARBIDOPA\LEVODOPA [Suspect]
     Active Substance: CARBIDOPA\LEVODOPA
  3. BENSERAZIDE HYDROCHLORIDE\LEVODOPA [Concomitant]
     Active Substance: BENSERAZIDE HYDROCHLORIDE\LEVODOPA
     Indication: Parkinson^s disease
     Dosage: 1X2
     Route: 048

REACTIONS (4)
  - General physical health deterioration [Recovered/Resolved]
  - Malnutrition [Recovered/Resolved]
  - Pneumonia [Recovering/Resolving]
  - Death [Fatal]

NARRATIVE: CASE EVENT DATE: 20211012
